FAERS Safety Report 11401646 (Version 2)
Quarter: 2015Q3

REPORT INFORMATION
  Report Type: Report from Study
  Country: GB (occurrence: GB)
  Receive Date: 20150821
  Receipt Date: 20150929
  Transmission Date: 20151125
  Serious: Yes (Other)
  Sender: FDA-Public Use
  Company Number: GB-AMGEN-GBRNI2015055257

PATIENT
  Age: 5 Year
  Sex: Female
  Weight: 19 kg

DRUGS (4)
  1. ETANERCEPT [Suspect]
     Active Substance: ETANERCEPT
     Dosage: 7.5 MG, 2X/WEEK
     Route: 058
     Dates: start: 20030304, end: 20070329
  2. METHOTREXATE SODIUM. [Concomitant]
     Active Substance: METHOTREXATE SODIUM
     Dosage: 7.5 MG, WEEKLY
     Route: 048
     Dates: start: 2002
  3. ETANERCEPT [Suspect]
     Active Substance: ETANERCEPT
     Indication: JUVENILE IDIOPATHIC ARTHRITIS
     Dosage: 6.25 UNK, 2X/WEEK
     Route: 058
     Dates: start: 2002
  4. METHOTREXATE SODIUM. [Concomitant]
     Active Substance: METHOTREXATE SODIUM
     Dosage: 7.5 MG, WEEKLY
     Route: 048
     Dates: start: 2002, end: 200209

REACTIONS (2)
  - Condition aggravated [Unknown]
  - Uveitis [Unknown]

NARRATIVE: CASE EVENT DATE: 20030331
